FAERS Safety Report 6425271-1 (Version None)
Quarter: 2009Q4

REPORT INFORMATION
  Report Type: 
  Country: None (occurrence: None)
  Receive Date: 20091030
  Receipt Date: 20091030
  Transmission Date: 20100525
  Serious: No
  Sender: FDA-Public Use
  Company Number: None

PATIENT
  Age: 46 Year
  Sex: Female
  Weight: 58.6 kg

DRUGS (2)
  1. XANAX [Suspect]
     Indication: ANXIETY
     Dosage: 0.5 MG TABLET 1X DAILY UP TO 2
  2. XANAX [Suspect]
     Indication: INSOMNIA
     Dosage: 0.5 MG TABLET 1X DAILY UP TO 2

REACTIONS (3)
  - FOOD POISONING [None]
  - MALAISE [None]
  - MIGRAINE [None]
